FAERS Safety Report 9299222 (Version 2)
Quarter: 2013Q2

REPORT INFORMATION
  Report Type: Spontaneous
  Country: PL (occurrence: PL)
  Receive Date: 20130520
  Receipt Date: 20130606
  Transmission Date: 20140414
  Serious: Yes (Life-Threatening)
  Sender: FDA-Public Use
  Company Number: PL-BAXTER-2013BAX017655

PATIENT
  Sex: 0

DRUGS (5)
  1. ENDOXAN [Suspect]
     Indication: DIFFUSE LARGE B-CELL LYMPHOMA
     Dosage: ON THE FIRST DAY
     Route: 065
     Dates: start: 200710, end: 200805
  2. RITUXIMAB [Suspect]
     Indication: DIFFUSE LARGE B-CELL LYMPHOMA
     Dosage: ON THE FIRST DAY
     Route: 065
     Dates: start: 200710, end: 200805
  3. DOXORUBICIN [Suspect]
     Indication: DIFFUSE LARGE B-CELL LYMPHOMA
     Dosage: ON THE FIRST DAY
     Route: 065
     Dates: start: 200710, end: 200805
  4. VINCRISTINE [Suspect]
     Indication: DIFFUSE LARGE B-CELL LYMPHOMA
     Dosage: MAX 2 MG PER CYCLE; ON THE FIRST DAY
     Route: 065
     Dates: start: 200710, end: 200805
  5. PREDNISONE [Suspect]
     Indication: DIFFUSE LARGE B-CELL LYMPHOMA
     Dosage: ON DAYS 1-5 ADMINISTERED MOST FREQUENTLY 6-8 TIMES IN 21 DAY INTERVALS
     Route: 065
     Dates: start: 200710, end: 200805

REACTIONS (1)
  - Small intestinal perforation [Recovered/Resolved]
